FAERS Safety Report 12371288 (Version 1)
Quarter: 2016Q2

REPORT INFORMATION
  Report Type: Spontaneous
  Country: US (occurrence: US)
  Receive Date: 20160516
  Receipt Date: 20160516
  Transmission Date: 20160815
  Serious: No
  Sender: FDA-Public Use
  Company Number: US-MYLANLABS-2016M1010917

PATIENT
  Sex: Female
  Weight: 60.77 kg

DRUGS (2)
  1. ACEBUTOLOL [Suspect]
     Active Substance: ACEBUTOLOL
     Indication: ARRHYTHMIA
     Dosage: 200 MG, BID
     Dates: start: 2012, end: 2012
  2. ACEBUTOLOL [Suspect]
     Active Substance: ACEBUTOLOL
     Indication: TACHYCARDIA

REACTIONS (1)
  - Drug ineffective [Recovered/Resolved]

NARRATIVE: CASE EVENT DATE: 2012
